FAERS Safety Report 18579061 (Version 1)
Quarter: 2020Q4

REPORT INFORMATION
  Report Type: Spontaneous
  Country: US (occurrence: US)
  Receive Date: 20201203
  Receipt Date: 20201203
  Transmission Date: 20210114
  Serious: Yes (Hospitalization)
  Sender: FDA-Public Use
  Company Number: None

PATIENT
  Age: 66 Year
  Sex: Female
  Weight: 68 kg

DRUGS (9)
  1. DILTIAZEM CD 180MG DAILY [Concomitant]
  2. GABAPENTIN 300MG BID [Concomitant]
  3. CHANTIX 1MG BID [Concomitant]
  4. ACETAMINOPHEN PRN [Concomitant]
  5. LEVOTHYROXINE 88MCG DAILY [Concomitant]
  6. VOLTAREN TOPICAL PRN [Concomitant]
  7. CARBATROL 200MG BID [Concomitant]
  8. ACTEMRA [Suspect]
     Active Substance: TOCILIZUMAB
     Indication: RHEUMATOID ARTHRITIS
     Dosage: ?          OTHER FREQUENCY:2 WEEKS;?
     Route: 058
     Dates: start: 20181107, end: 20201118
  9. LIPITOR 40MG DAILY [Concomitant]

REACTIONS (2)
  - Colitis ischaemic [None]
  - Gastrointestinal perforation [None]

NARRATIVE: CASE EVENT DATE: 20201029
